FAERS Safety Report 26157556 (Version 1)
Quarter: 2025Q4

REPORT INFORMATION
  Report Type: Spontaneous
  Country: US (occurrence: None)
  Receive Date: 20251212
  Receipt Date: 20251212
  Transmission Date: 20260117
  Serious: Yes (Life-Threatening, Other)
  Sender: FDA-CTU
  Company Number: None

PATIENT
  Age: 53 Year
  Sex: Female
  Weight: 74.25 kg

DRUGS (7)
  1. NP THYROID [Suspect]
     Active Substance: LEVOTHYROXINE\LIOTHYRONINE
     Indication: Thyroid disorder
     Dosage: OTHER QUANTITY : 1 TABLET(S);?FREQUENCY : DAILY;
     Route: 048
     Dates: start: 20250707, end: 20250710
  2. Shaklee Vita Lea w/Iron Multi Vitamin [Concomitant]
  3. Shaklee Omega [Concomitant]
  4. Shaklee Carotomax [Concomitant]
  5. Shaklee Vitamin D [Concomitant]
  6. Shaklee [Concomitant]
  7. ZINC [Concomitant]
     Active Substance: ZINC

REACTIONS (4)
  - Headache [None]
  - Insomnia [None]
  - Dysphagia [None]
  - Throat tightness [None]

NARRATIVE: CASE EVENT DATE: 20250710
